FAERS Safety Report 8602125-3 (Version None)
Quarter: 2012Q3

REPORT INFORMATION
  Report Type: 
  Country: None (occurrence: None)
  Receive Date: 20120817
  Receipt Date: 20120806
  Transmission Date: 20120928
  Serious: Yes (Other)
  Sender: FDA-Public Use
  Company Number: DE-NOVOPROD-357613

PATIENT
  Age: 57 Year
  Sex: Female
  Weight: 80.4 kg

DRUGS (1)
  1. NORDITROPIN FLEXPRO [Suspect]
     Indication: GROWTH HORMONE DEFICIENCY
     Dosage: 0.2 MG, QD
     Route: 058
     Dates: start: 20120213

REACTIONS (4)
  - TROPONIN INCREASED [None]
  - PITUITARY TUMOUR RECURRENT [None]
  - ARTERIOSPASM CORONARY [None]
  - ANGINA PECTORIS [None]
